FAERS Safety Report 22257051 (Version 1)
Quarter: 2023Q2

REPORT INFORMATION
  Report Type: Spontaneous
  Country: JP (occurrence: None)
  Receive Date: 20230427
  Receipt Date: 20230427
  Transmission Date: 20230721
  Serious: Yes (Other)
  Sender: FDA-Public Use
  Company Number: JP-Merck Healthcare KGaA-9367197

PATIENT

DRUGS (2)
  1. METGLUCO [Suspect]
     Active Substance: METFORMIN HYDROCHLORIDE
     Indication: Product used for unknown indication
     Route: 048
  2. IMEGLIMIN [Suspect]
     Active Substance: IMEGLIMIN
     Indication: Product used for unknown indication
     Route: 048

REACTIONS (1)
  - Ileus [Unknown]
